FAERS Safety Report 4760413-5 (Version None)
Quarter: 2005Q3

REPORT INFORMATION
  Report Type: 
  Country: None (occurrence: None)
  Receive Date: 20050902
  Receipt Date: 20040915
  Transmission Date: 20060218
  Serious: Yes (Hospitalization)
  Sender: FDA-Public Use
  Company Number: FR-BRISTOL-MYERS SQUIBB COMPANY-12701785

PATIENT
  Age: 58 Year
  Sex: Male

DRUGS (24)
  1. TOTAPEN [Suspect]
     Dates: start: 20040101
  2. GENTAMICIN [Suspect]
     Dates: start: 20040101
  3. TRACRIUM [Concomitant]
     Route: 042
     Dates: start: 20040101
  4. LOVENOX [Concomitant]
  5. ATARAX [Concomitant]
  6. LORAZEPAM [Concomitant]
  7. CATAPRES [Concomitant]
  8. AMPICILLIN [Concomitant]
  9. GENTAMYCIN SULFATE [Concomitant]
  10. KETALAR [Concomitant]
  11. ATROPINE [Concomitant]
  12. VOLUVEN [Concomitant]
  13. TIBERAL [Concomitant]
  14. MIDAZOLAM HCL [Concomitant]
  15. SUFENTA [Concomitant]
  16. PROSTIGMINE [Concomitant]
  17. PLASMION [Concomitant]
  18. ZOMIG [Concomitant]
  19. ASPEGIC 325 [Concomitant]
  20. MORPHINE [Concomitant]
  21. ACUPAN [Concomitant]
  22. TRANXENE [Concomitant]
  23. PERFALGAN [Concomitant]
  24. OMEPRAZOLE [Concomitant]

REACTIONS (2)
  - DERMATITIS BULLOUS [None]
  - HYPERSENSITIVITY [None]
